APPROVED DRUG PRODUCT: VIDEX
Active Ingredient: DIDANOSINE
Strength: 375MG/PACKET
Dosage Form/Route: FOR SOLUTION;ORAL
Application: N020155 | Product #006
Applicant: BRISTOL MYERS SQUIBB CO PHARMACEUTICAL RESEARCH INSTITUTE
Approved: Oct 9, 1991 | RLD: No | RS: No | Type: DISCN